FAERS Safety Report 10990405 (Version 1)
Quarter: 2015Q1

REPORT INFORMATION
  Report Type: Spontaneous
  Country: US (occurrence: None)
  Receive Date: 20150326
  Receipt Date: 20150326
  Transmission Date: 20150721
  Serious: No
  Sender: FDA-Public Use
  Company Number: 1000074953

PATIENT
  Sex: Male

DRUGS (2)
  1. OXYCODONE [Concomitant]
     Active Substance: OXYCODONE
  2. LINZESS [Suspect]
     Active Substance: LINACLOTIDE
     Dosage: 145MCG (145 MCG, 1 IN 1 D)??

REACTIONS (1)
  - Abnormal faeces [None]
